FAERS Safety Report 8070428-X (Version None)
Quarter: 2012Q1

REPORT INFORMATION
  Report Type: 
  Country: None (occurrence: None)
  Receive Date: 20120125
  Receipt Date: 20120116
  Transmission Date: 20120608
  Serious: Yes (Life-Threatening, Other)
  Sender: FDA-Public Use
  Company Number: JP-BRISTOL-MYERS SQUIBB COMPANY-16355497

PATIENT
  Age: 87 Year
  Sex: Female

DRUGS (3)
  1. AVAPRO [Suspect]
     Route: 048
     Dates: start: 20120112, end: 20120116
  2. LOSARTAN POTASSIUM AND HYDROCHLOROTHIAZIDE [Suspect]
     Dosage: PREMINENT
  3. NITRODERM [Concomitant]

REACTIONS (6)
  - BRADYCARDIA [None]
  - RENAL ARTERY STENOSIS [None]
  - LACTIC ACIDOSIS [None]
  - BLOOD PRESSURE DECREASED [None]
  - HYPERKALAEMIA [None]
  - LOSS OF CONSCIOUSNESS [None]
